FAERS Safety Report 9143605 (Version 1)
Quarter: 2013Q1

REPORT INFORMATION
  Report Type: Spontaneous
  Country: FR (occurrence: FR)
  Receive Date: 20130306
  Receipt Date: 20130306
  Transmission Date: 20140127
  Serious: Yes (Other)
  Sender: FDA-Public Use
  Company Number: FR-ROCHE-1198344

PATIENT
  Sex: Male

DRUGS (2)
  1. MABTHERA [Suspect]
     Indication: LYMPHOMA
     Route: 065
     Dates: start: 20120204
  2. MABTHERA [Suspect]
     Route: 065
     Dates: start: 20120226

REACTIONS (2)
  - Malaise [Recovered/Resolved]
  - Altered state of consciousness [Recovered/Resolved]
